FAERS Safety Report 18007261 (Version 1)
Quarter: 2020Q3

REPORT INFORMATION
  Report Type: Spontaneous
  Country: US (occurrence: US)
  Receive Date: 20200710
  Receipt Date: 20200710
  Transmission Date: 20201103
  Serious: Yes (Other)
  Sender: FDA-Public Use
  Company Number: US-USWM, LLC-UWM202007-000001

PATIENT
  Age: 60 Year
  Sex: Female

DRUGS (12)
  1. IPRATROPIUM BROMIDE/ LEVABUTEROL [Concomitant]
     Dosage: NOT PROVIDED
  2. LORAZEPAM. [Concomitant]
     Active Substance: LORAZEPAM
     Indication: ANXIETY
     Dosage: NOT PROVIDED
  3. SINGULAIR [Concomitant]
     Active Substance: MONTELUKAST SODIUM
  4. DOXYCYCLINE. [Concomitant]
     Active Substance: DOXYCYCLINE
     Indication: LUNG DISORDER
     Dosage: NOT PROVIDED
  5. PROMETHAZINE HYDROCHLORIDE. [Concomitant]
     Active Substance: PROMETHAZINE HYDROCHLORIDE
     Indication: NAUSEA
     Dosage: NOT PROVIDED
  6. OXYCODONE [Concomitant]
     Active Substance: OXYCODONE
     Indication: SPINAL SYNOVIAL CYST
     Dosage: NOT PROVIDED
  7. CRESTOR [Concomitant]
     Active Substance: ROSUVASTATIN CALCIUM
     Dosage: NOT PROVIDED
  8. CORGARD [Suspect]
     Active Substance: NADOLOL
     Indication: PALPITATIONS
  9. GABAPENTIN. [Concomitant]
     Active Substance: GABAPENTIN
     Indication: NEURALGIA
     Dosage: NOT PROVIDED
  10. FLORASTOR [Concomitant]
     Active Substance: SACCHAROMYCES CEREVISIAE
     Dosage: NOT PROVIDED
  11. CORGARD [Suspect]
     Active Substance: NADOLOL
  12. ASPIRIN. [Concomitant]
     Active Substance: ASPIRIN
     Dosage: NOT PROVIDED

REACTIONS (7)
  - Staphylococcal infection [Unknown]
  - Bronchial disorder [Unknown]
  - Product use in unapproved indication [Unknown]
  - Hepatic enzyme increased [Unknown]
  - Bronchiectasis [Unknown]
  - Product availability issue [Unknown]
  - Pelvic prolapse [Unknown]

NARRATIVE: CASE EVENT DATE: 2020
